FAERS Safety Report 19053137 (Version 1)
Quarter: 2021Q1

REPORT INFORMATION
  Report Type: Spontaneous
  Country: AU (occurrence: AU)
  Receive Date: 20210324
  Receipt Date: 20210324
  Transmission Date: 20210420
  Serious: Yes (Hospitalization)
  Sender: FDA-Public Use
  Company Number: AU-MYLANLABS-2021M1017602

PATIENT
  Age: 62 Year
  Sex: Female

DRUGS (7)
  1. PACLITAXEL. [Suspect]
     Active Substance: PACLITAXEL
     Indication: BREAST CANCER
     Dosage: UNK UNK, CYCLE
     Route: 065
  2. MIDAZOLAM. [Suspect]
     Active Substance: MIDAZOLAM
     Indication: SEDATIVE THERAPY
     Dosage: 8 MILLIGRAM (INTRAVENOUS (NOT SPECIFIED))
     Route: 042
  3. LIGNOCAINE                         /00033401/ [Concomitant]
     Active Substance: LIDOCAINE HYDROCHLORIDE
     Indication: DRUG THERAPY
     Dosage: 275 MILLIGRAM
     Route: 061
  4. FENTANYL. [Concomitant]
     Active Substance: FENTANYL
     Indication: DRUG THERAPY
     Dosage: 100 MICROGRAM
     Route: 065
  5. COPHENYLCAINE [Concomitant]
     Indication: DRUG THERAPY
     Dosage: UNK
     Route: 061
  6. EPINEPHRINE. [Concomitant]
     Active Substance: EPINEPHRINE
     Indication: HAEMOPTYSIS
     Dosage: UNK
     Route: 061
  7. SALINE                             /00075401/ [Concomitant]
     Active Substance: SODIUM CHLORIDE
     Indication: HAEMOPTYSIS
     Dosage: COLD SALINE
     Route: 065

REACTIONS (5)
  - Hypersensitivity pneumonitis [Recovering/Resolving]
  - Joint dislocation [Recovering/Resolving]
  - Drug ineffective [Unknown]
  - Type IV hypersensitivity reaction [Recovering/Resolving]
  - Temporomandibular joint syndrome [Recovering/Resolving]
